FAERS Safety Report 21361164 (Version 1)
Quarter: 2022Q3

REPORT INFORMATION
  Report Type: Spontaneous
  Country: US (occurrence: US)
  Receive Date: 20220921
  Receipt Date: 20220921
  Transmission Date: 20221027
  Serious: Yes (Other)
  Sender: FDA-Public Use
  Company Number: US-OTSUKA-2022_045322

PATIENT
  Sex: Male
  Weight: 81.65 kg

DRUGS (7)
  1. REXULTI [Interacting]
     Active Substance: BREXPIPRAZOLE
     Indication: Major depression
     Dosage: 0.5 MG NIGHT
     Route: 048
     Dates: start: 20220901
  2. REXULTI [Interacting]
     Active Substance: BREXPIPRAZOLE
     Indication: Depression
  3. REXULTI [Interacting]
     Active Substance: BREXPIPRAZOLE
     Indication: Anxiety
  4. ABILIFY [Suspect]
     Active Substance: ARIPIPRAZOLE
     Indication: Major depression
     Dosage: 2 MG
     Route: 065
  5. GLEEVEC [Interacting]
     Active Substance: IMATINIB MESYLATE
     Indication: Chemotherapy
     Dosage: 300 MG
     Route: 065
  6. PROZAC [Suspect]
     Active Substance: FLUOXETINE HYDROCHLORIDE
     Indication: Major depression
     Dosage: 45 MG
     Route: 065
  7. VALSARTAN [Concomitant]
     Active Substance: VALSARTAN
     Indication: Hypertension
     Dosage: 160 MG
     Route: 065

REACTIONS (8)
  - Neuropathy peripheral [Unknown]
  - Somnolence [Unknown]
  - Sleep disorder [Unknown]
  - Feeling abnormal [Unknown]
  - Restlessness [Unknown]
  - Tremor [Unknown]
  - Drug interaction [Unknown]
  - Drug effective for unapproved indication [Unknown]
